FAERS Safety Report 15244544 (Version 2)
Quarter: 2019Q2

REPORT INFORMATION
  Report Type: Spontaneous
  Country: US (occurrence: US)
  Receive Date: 20180806
  Receipt Date: 20190514
  Transmission Date: 20190711
  Serious: Yes (Other)
  Sender: FDA-Public Use
  Company Number: US-TAKEDA-2018TUS023681

PATIENT
  Age: 36 Year
  Sex: Female
  Weight: 104.31 kg

DRUGS (2)
  1. ENTYVIO [Suspect]
     Active Substance: VEDOLIZUMAB
     Indication: CROHN^S DISEASE
     Dosage: 300 MILLIGRAM
     Route: 042
     Dates: start: 20160924
  2. ENTYVIO [Suspect]
     Active Substance: VEDOLIZUMAB
     Dosage: 300 MILLIGRAM
     Route: 042

REACTIONS (5)
  - Umbilical cord thrombosis [Unknown]
  - Stillbirth [Unknown]
  - Off label use [Unknown]
  - Pregnancy [Recovered/Resolved]
  - Hyperemesis gravidarum [Unknown]

NARRATIVE: CASE EVENT DATE: 20180627
